FAERS Safety Report 9790379 (Version 2)
Quarter: 2013Q4

REPORT INFORMATION
  Report Type: Spontaneous
  Country: DE (occurrence: DE)
  Receive Date: 20131231
  Receipt Date: 20131231
  Transmission Date: 20140711
  Serious: Yes (Hospitalization, Other)
  Sender: FDA-Public Use
  Company Number: DE-JNJFOC-20130703698

PATIENT
  Age: 75 Year
  Sex: Male
  Weight: 84 kg

DRUGS (8)
  1. XARELTO [Suspect]
     Indication: CEREBROVASCULAR ACCIDENT PROPHYLAXIS
     Route: 048
     Dates: start: 20130108, end: 20131010
  2. XARELTO [Suspect]
     Indication: ATRIAL FIBRILLATION
     Route: 048
     Dates: start: 20130108, end: 20131010
  3. SIMVASTATIN [Concomitant]
     Route: 065
  4. VERAPAMIL [Concomitant]
     Route: 065
  5. HYDROCHLOROTHIAZIDE [Concomitant]
     Route: 065
  6. LEVETIRACETAM [Concomitant]
     Route: 065
  7. ENALAPRIL [Concomitant]
     Route: 065
  8. ALLOPURINOL [Concomitant]
     Dosage: EVERY MORNING
     Route: 065

REACTIONS (6)
  - Cerebellar haemorrhage [Not Recovered/Not Resolved]
  - Dysarthria [Unknown]
  - VIIth nerve paralysis [Unknown]
  - Vomiting [Unknown]
  - Disorientation [Unknown]
  - Hypokalaemia [Unknown]
